FAERS Safety Report 4639102-3 (Version None)
Quarter: 2005Q2

REPORT INFORMATION
  Report Type: 
  Country: None (occurrence: None)
  Receive Date: 20050418
  Receipt Date: 20050412
  Transmission Date: 20051028
  Serious: Yes (Hospitalization)
  Sender: FDA-Public Use
  Company Number: 2004SE06361

PATIENT
  Age: 70 Year
  Sex: Female
  Weight: 39 kg

DRUGS (14)
  1. BLOPRESS [Suspect]
     Indication: HYPERTENSION
     Dosage: 4 MG QD PO
     Route: 048
     Dates: start: 20011108, end: 20041012
  2. NORVASC [Suspect]
     Indication: HYPERTENSION
     Dosage: 5 MG QD PO
     Route: 048
     Dates: end: 20041012
  3. URSO 250 [Concomitant]
  4. S.M. POWDER [Concomitant]
  5. NEUROVITAN [Concomitant]
  6. DEPAS [Concomitant]
  7. VEEN D [Concomitant]
  8. NEUROTROPIN [Concomitant]
  9. ATARAX [Concomitant]
  10. ROCALTROL [Concomitant]
  11. ALESION [Concomitant]
  12. HALCION [Concomitant]
  13. LASIX [Concomitant]
  14. SAXIZON [Concomitant]

REACTIONS (6)
  - BLOOD PRESSURE SYSTOLIC INCREASED [None]
  - DERMATOMYOSITIS [None]
  - HYPOKALAEMIA [None]
  - POLYMYOSITIS [None]
  - RASH PRURITIC [None]
  - RHABDOMYOLYSIS [None]
